FAERS Safety Report 23049950 (Version 1)
Quarter: 2023Q4

REPORT INFORMATION
  Report Type: Spontaneous
  Country: US (occurrence: None)
  Receive Date: 20231008
  Receipt Date: 20231008
  Transmission Date: 20240110
  Serious: No
  Sender: FDA-Public Use
  Company Number: None

PATIENT
  Age: 47 Year
  Sex: Female
  Weight: 69.75 kg

DRUGS (4)
  1. TYRVAYA [Suspect]
     Active Substance: VARENICLINE TARTRATE
     Indication: Dry eye
     Dosage: FREQUENCY : TWICE A DAY;?OTHER ROUTE : NASAL SPRAY;?
     Route: 050
     Dates: start: 20231008
  2. VITAMIN D [Concomitant]
     Active Substance: VITAMIN D NOS
  3. MAGNESIUM [Concomitant]
     Active Substance: MAGNESIUM
  4. FERROUS SULFATE ANHYDROUS [Concomitant]
     Active Substance: FERROUS SULFATE ANHYDROUS

REACTIONS (6)
  - Nasal discomfort [None]
  - Throat irritation [None]
  - Ear pain [None]
  - Tinnitus [None]
  - Eye pain [None]
  - Ocular discomfort [None]

NARRATIVE: CASE EVENT DATE: 20231008
